FAERS Safety Report 12658511 (Version 4)
Quarter: 2016Q4

REPORT INFORMATION
  Report Type: Report from Study
  Country: CO (occurrence: CO)
  Receive Date: 20160817
  Receipt Date: 20161006
  Transmission Date: 20170207
  Serious: Yes (Death, Hospitalization, Other)
  Sender: FDA-Public Use
  Company Number: PHHY2016CO096461

PATIENT
  Age: 70 Year
  Sex: Male
  Weight: 61.5 kg

DRUGS (7)
  1. BISACODYL. [Concomitant]
     Active Substance: BISACODYL
     Indication: PRODUCT USED FOR UNKNOWN INDICATION
     Route: 065
  2. CAPTOPRIL. [Concomitant]
     Active Substance: CAPTOPRIL
     Indication: BLOOD PRESSURE MEASUREMENT
     Route: 065
  3. VOTRIENT [Suspect]
     Active Substance: PAZOPANIB HYDROCHLORIDE
     Indication: RENAL CELL CARCINOMA
     Dosage: 200 MG, QID
     Route: 048
     Dates: start: 20160222
  4. VOTRIENT [Suspect]
     Active Substance: PAZOPANIB HYDROCHLORIDE
     Dosage: 1200 MG, QD (THREE TIMES A DAY/ TOOK VOTRIENT FOUR TIMES A DAY WITH DOSING OF 1200 MG DAILY)
     Route: 048
     Dates: start: 20160701
  5. ASAWIN [Concomitant]
     Active Substance: ASPIRIN
     Indication: PRODUCT USED FOR UNKNOWN INDICATION
     Route: 065
  6. TRAMADOL. [Concomitant]
     Active Substance: TRAMADOL
     Indication: PRODUCT USED FOR UNKNOWN INDICATION
     Route: 065
  7. ACETAMINOPHEN. [Concomitant]
     Active Substance: ACETAMINOPHEN
     Indication: PRODUCT USED FOR UNKNOWN INDICATION
     Route: 065

REACTIONS (17)
  - Dizziness [Unknown]
  - Incorrect dose administered [Unknown]
  - Diarrhoea haemorrhagic [Unknown]
  - Back pain [Unknown]
  - Hyperhidrosis [Unknown]
  - Feeling of despair [Unknown]
  - Haematemesis [Unknown]
  - Amnesia [Unknown]
  - Alopecia [Unknown]
  - Diarrhoea [Unknown]
  - Myocardial infarction [Fatal]
  - Chest pain [Unknown]
  - Eating disorder [Unknown]
  - Vomiting [Unknown]
  - Speech disorder [Unknown]
  - Inappropriate schedule of drug administration [Unknown]
  - Hypoaesthesia [Unknown]

NARRATIVE: CASE EVENT DATE: 20160810
